FAERS Safety Report 7718783-1 (Version None)
Quarter: 2011Q3

REPORT INFORMATION
  Report Type: 
  Country: None (occurrence: None)
  Receive Date: 20110830
  Receipt Date: 20110829
  Transmission Date: 20111222
  Serious: Yes (Other)
  Sender: FDA-Public Use
  Company Number: PE-PFIZER INC-2011193904

PATIENT
  Age: 69 Year
  Sex: Male

DRUGS (3)
  1. TOLTERODINE TARTRATE [Suspect]
     Indication: HYPERTONIC BLADDER
     Dosage: 1 MG, 1X/DAY
     Route: 048
     Dates: start: 20110701, end: 20110701
  2. CARDURA [Suspect]
     Indication: BENIGN PROSTATIC HYPERPLASIA
     Dosage: 4 MG, 1X/DAY
     Route: 048
     Dates: start: 20110501
  3. TOLTERODINE TARTRATE [Suspect]
     Dosage: 4 MG, 1X/DAY
     Route: 048
     Dates: start: 20110701, end: 20110701

REACTIONS (1)
  - ANURIA [None]
